FAERS Safety Report 7573186-8 (Version None)
Quarter: 2011Q2

REPORT INFORMATION
  Report Type: 
  Country: None (occurrence: None)
  Receive Date: 20110627
  Receipt Date: 20110609
  Transmission Date: 20111010
  Serious: No
  Sender: FDA-Public Use
  Company Number: US-B.I. PHARMACEUTICALS,INC./RIDGEFIELD-2011-BP-13910BP

PATIENT
  Age: 61 Year
  Sex: Female
  Weight: 44.45 kg

DRUGS (5)
  1. PREMARIN [Concomitant]
     Dosage: 1.25 MG
  2. CYCLOBENZAPRINE HCL [Concomitant]
     Dosage: 30 MG
  3. TRAZODONE HCL [Concomitant]
     Dosage: 25 MG
  4. MELOXICAM [Concomitant]
     Dosage: 15 MG
  5. SPIRIVA [Suspect]
     Indication: CHRONIC OBSTRUCTIVE PULMONARY DISEASE
     Dosage: 18 MCG
     Route: 055
     Dates: start: 20110425, end: 20110512

REACTIONS (3)
  - SWELLING [None]
  - VEIN DISORDER [None]
  - HEADACHE [None]
